FAERS Safety Report 25850067 (Version 2)
Quarter: 2025Q4

REPORT INFORMATION
  Report Type: Spontaneous
  Country: CA (occurrence: CA)
  Receive Date: 20250926
  Receipt Date: 20251006
  Transmission Date: 20260118
  Serious: Yes (Other)
  Sender: CELLTRION
  Company Number: CA-CELLTRION INC.-2025CA034117

PATIENT

DRUGS (1)
  1. STEQEYMA [Suspect]
     Active Substance: USTEKINUMAB-STBA
     Indication: Psoriasis
     Dosage: 45MG Q12W
     Route: 058
     Dates: start: 20250403

REACTIONS (3)
  - Knee operation [Unknown]
  - Rash macular [Unknown]
  - Psoriasis [Unknown]

NARRATIVE: CASE EVENT DATE: 20250914
